FAERS Safety Report 6050614-0 (Version None)
Quarter: 2009Q1

REPORT INFORMATION
  Report Type: 
  Country: None (occurrence: None)
  Receive Date: 20090121
  Receipt Date: 20090121
  Transmission Date: 20090719
  Serious: No
  Sender: FDA-Public Use
  Company Number: None

PATIENT
  Age: 86 Year
  Sex: Female

DRUGS (1)
  1. ZOLPIDEM [Suspect]
     Indication: SLEEP DISORDER
     Dosage: 1 TABLET BEDTIME PO
     Route: 048
     Dates: start: 20090101

REACTIONS (6)
  - ABDOMINAL DISCOMFORT [None]
  - ANXIETY [None]
  - DRY MOUTH [None]
  - FATIGUE [None]
  - HALLUCINATION [None]
  - HEART RATE INCREASED [None]
